FAERS Safety Report 8131496-X (Version None)
Quarter: 2012Q1

REPORT INFORMATION
  Report Type: 
  Country: None (occurrence: None)
  Receive Date: 20120213
  Receipt Date: 20120202
  Transmission Date: 20120608
  Serious: Yes (Other)
  Sender: FDA-Public Use
  Company Number: AU-JNJFOC-20120113044

PATIENT
  Sex: Female
  Weight: 65 kg

DRUGS (1)
  1. RISPERDAL [Suspect]
     Indication: PRODUCT USED FOR UNKNOWN INDICATION
     Route: 048
     Dates: end: 20120125

REACTIONS (3)
  - AMENORRHOEA [None]
  - INFERTILITY [None]
  - BLOOD PROLACTIN INCREASED [None]
